FAERS Safety Report 8824957 (Version 1)
Quarter: 2012Q4

REPORT INFORMATION
  Report Type: 
  Country: US (occurrence: US)
  Receive Date: 20121004
  Receipt Date: 20121004
  Transmission Date: 20130627
  Serious: Yes (Other)
  Sender: FDA-Public Use
  Company Number: US-PFIZER INC-2012244522

PATIENT
  Age: 30 Year
  Sex: Male
  Weight: 67.57 kg

DRUGS (2)
  1. LYRICA [Suspect]
     Indication: INTERVERTEBRAL DISC DEGENERATION
     Dosage: 150 mg, 2x/day
     Route: 048
     Dates: start: 2012
  2. SYNTHROID [Concomitant]
     Indication: HYPOTHYROIDISM
     Dosage: 1 mg, 1x/day

REACTIONS (3)
  - Hypothalamo-pituitary disorder [Unknown]
  - Poor quality drug administered [Unknown]
  - Product quality issue [Unknown]
